FAERS Safety Report 12427855 (Version 1)
Quarter: 2016Q2

REPORT INFORMATION
  Report Type: Spontaneous
  Country: JP (occurrence: JP)
  Receive Date: 20160602
  Receipt Date: 20160602
  Transmission Date: 20160815
  Serious: Yes (Death, Hospitalization, Other)
  Sender: FDA-Public Use
  Company Number: JP-BRISTOL-MYERS SQUIBB COMPANY-BMS-2016-041664

PATIENT
  Age: 72 Year
  Sex: Female

DRUGS (4)
  1. SITAGLIPTIN [Concomitant]
     Active Substance: SITAGLIPTIN
     Indication: DEPRESSION
     Dosage: 50 MG, BID
     Route: 048
  2. INSULIN GLARGINE [Concomitant]
     Active Substance: INSULIN GLARGINE
     Indication: TYPE 2 DIABETES MELLITUS
     Dosage: 14 IU, BID
     Route: 058
  3. METGLUCO [Suspect]
     Active Substance: METFORMIN HYDROCHLORIDE
     Indication: TYPE 2 DIABETES MELLITUS
     Dosage: QD
     Route: 048
  4. SITAGLIPTIN [Concomitant]
     Active Substance: SITAGLIPTIN
     Indication: ANXIETY

REACTIONS (14)
  - Renal failure [Fatal]
  - Cardiomegaly [Fatal]
  - Lactic acidosis [Fatal]
  - Anion gap increased [Fatal]
  - Hypotension [Fatal]
  - Hypoglycaemia [Fatal]
  - Metabolic acidosis [Fatal]
  - Overdose [Fatal]
  - Blood lactic acid increased [Fatal]
  - Blood pH decreased [Fatal]
  - Death [Fatal]
  - Pulmonary oedema [Fatal]
  - Anuria [Fatal]
  - Vomiting [Fatal]
